FAERS Safety Report 17978593 (Version 1)
Quarter: 2020Q3

REPORT INFORMATION
  Report Type: Report from Study
  Country: ES (occurrence: ES)
  Receive Date: 20200703
  Receipt Date: 20200703
  Transmission Date: 20201103
  Serious: Yes (Hospitalization, Other)
  Sender: FDA-Public Use
  Company Number: ES-PFIZER INC-2020109568

PATIENT
  Age: 4 Year
  Sex: Male
  Weight: 20.6 kg

DRUGS (1)
  1. SOMATROPIN. [Suspect]
     Active Substance: SOMATROPIN
     Indication: PRADER-WILLI SYNDROME
     Dosage: 0.6 MG, 1X/DAY (STRENGTH 5MG/1.5ML)
     Route: 065
     Dates: start: 20160212

REACTIONS (3)
  - Sleep apnoea syndrome [Recovered/Resolved]
  - Tonsillar hypertrophy [Recovered/Resolved]
  - Thrombocytosis [Unknown]

NARRATIVE: CASE EVENT DATE: 20180524
